FAERS Safety Report 18728140 (Version 1)
Quarter: 2021Q1

REPORT INFORMATION
  Report Type: Spontaneous
  Country: FR (occurrence: FR)
  Receive Date: 20210112
  Receipt Date: 20210112
  Transmission Date: 20210419
  Serious: Yes (Death, Hospitalization)
  Sender: FDA-Public Use
  Company Number: FR-TEVA-2021-FR-1866259

PATIENT
  Age: 87 Year
  Sex: Female
  Weight: 37 kg

DRUGS (17)
  1. PANTOPRAZOLE [Suspect]
     Active Substance: PANTOPRAZOLE
     Indication: PRODUCT USED FOR UNKNOWN INDICATION
     Dosage: 20 MG
     Route: 048
     Dates: start: 2015, end: 20200917
  2. TRAMADOL (CHLORHYDRATE DE) [Concomitant]
     Active Substance: TRAMADOL HYDROCHLORIDE
     Dosage: 24 GTT
     Route: 048
     Dates: start: 20190408
  3. AUGMENTIN [Concomitant]
     Active Substance: AMOXICILLIN\CLAVULANATE POTASSIUM
     Dosage: 3000 MG
     Route: 048
     Dates: start: 20200916, end: 20200925
  4. TIMOLOL (MALEATE DE) [Concomitant]
     Dosage: 0.5 PERCENT
     Route: 047
     Dates: start: 20190408
  5. AUGMENTIN [Concomitant]
     Active Substance: AMOXICILLIN\CLAVULANATE POTASSIUM
     Dosage: 1500 MG
     Route: 042
     Dates: start: 20200825, end: 20200905
  6. POTASSIUM (TARTRATE ACIDE DE) [Concomitant]
     Dosage: 1 DOSAGE FORMS
     Route: 054
     Dates: start: 20190408
  7. OXAZEPAM. [Concomitant]
     Active Substance: OXAZEPAM
     Dosage: 10 MG
     Route: 048
     Dates: start: 20190820
  8. SINEMET [Concomitant]
     Active Substance: CARBIDOPA\LEVODOPA
     Dosage: 4 DOSAGE FORMS,
     Route: 048
     Dates: start: 20190408
  9. LACTULOSE. [Concomitant]
     Active Substance: LACTULOSE
     Dosage: 4 DOSAGE FORMS
     Route: 048
     Dates: start: 20190408
  10. ACIDE FOLIQUE [Concomitant]
     Active Substance: FOLIC ACID
     Dosage: 5 MG
     Route: 048
  11. XYLENE [Concomitant]
     Active Substance: XYLENE
     Dosage: 10 PERCENT
     Route: 001
     Dates: start: 20200701, end: 20200711
  12. TARDYFERON [Concomitant]
     Active Substance: FERROUS SULFATE
     Dosage: 80 MG
     Route: 048
  13. AUGMENTIN [Concomitant]
     Active Substance: AMOXICILLIN\CLAVULANATE POTASSIUM
     Dosage: 3000 MG
     Route: 048
     Dates: start: 20201005, end: 20201016
  14. PARACETAMOL [Concomitant]
     Active Substance: ACETAMINOPHEN
     Route: 048
     Dates: start: 20190408
  15. CLOZAPINE. [Concomitant]
     Active Substance: CLOZAPINE
     Dosage: 25 MG
     Route: 048
     Dates: start: 2012
  16. COLECALCIFEROL [Concomitant]
     Active Substance: CHOLECALCIFEROL
     Dosage: 1 DOSAGE FORMS
     Route: 048
     Dates: start: 20200506
  17. LATANOPROST. [Concomitant]
     Active Substance: LATANOPROST
     Dosage: 0.01 PERCENT
     Route: 047
     Dates: start: 20190408

REACTIONS (2)
  - Lung disorder [Recovering/Resolving]
  - Condition aggravated [Recovering/Resolving]

NARRATIVE: CASE EVENT DATE: 2017
